FAERS Safety Report 4805203-X (Version None)
Quarter: 2005Q4

REPORT INFORMATION
  Report Type: 
  Country: None (occurrence: None)
  Receive Date: 20051017
  Receipt Date: 20051003
  Transmission Date: 20060501
  Serious: Yes (Hospitalization)
  Sender: FDA-Public Use
  Company Number: 216639

PATIENT
  Age: 52 Year
  Sex: Female
  Weight: 75.3 kg

DRUGS (3)
  1. AVASTIN (BEVACIZUMAB) PWDR + SOLVENT, INFUSION SOLN, 100MG [Suspect]
     Indication: COLON CANCER METASTATIC
     Dosage: 5 MG/KG, Q2W, INTRAVENOUS
     Route: 042
  2. FLUOROURACIL [Suspect]
     Indication: COLON CANCER METASTATIC
     Dosage: 485 MG
     Dates: start: 20050706
  3. LEUCOVORIN CALCIUM [Suspect]
     Indication: COLON CANCER METASTATIC
     Dosage: 750 MG
     Dates: start: 20050706

REACTIONS (8)
  - DIAPHRAGM MUSCLE WEAKNESS [None]
  - DYSPHAGIA [None]
  - HERPETIC GINGIVOSTOMATITIS [None]
  - INJECTION SITE REACTION [None]
  - MUCOSAL INFLAMMATION [None]
  - ORAL INTAKE REDUCED [None]
  - SPEECH DISORDER [None]
  - VOCAL CORD PARALYSIS [None]
